FAERS Safety Report 19162456 (Version 1)
Quarter: 2021Q2

REPORT INFORMATION
  Report Type: Spontaneous
  Country: US (occurrence: US)
  Receive Date: 20210421
  Receipt Date: 20210421
  Transmission Date: 20210717
  Serious: Yes (Other)
  Sender: FDA-Public Use
  Company Number: US-AUROBINDO-AUR-APL-2021-010449

PATIENT
  Age: 54 Year
  Sex: Male

DRUGS (4)
  1. IBUPROFEN. [Suspect]
     Active Substance: IBUPROFEN
     Indication: ANALGESIC INTERVENTION SUPPORTIVE THERAPY
     Dosage: OCCASIONAL
     Route: 065
  2. ACETYLSALICYLIC ACID [Suspect]
     Active Substance: ASPIRIN
     Indication: ANALGESIC INTERVENTION SUPPORTIVE THERAPY
     Dosage: 81 MILLIGRAM, ONCE A DAY
     Route: 065
  3. PANTOPRAZOLE [Concomitant]
     Active Substance: PANTOPRAZOLE
     Indication: GASTRITIS
     Dosage: UNK UNK, TWO TIMES A DAY
     Route: 065
  4. HYDROGEN PEROXIDE. [Concomitant]
     Active Substance: HYDROGEN PEROXIDE
     Indication: PRODUCT USED FOR UNKNOWN INDICATION
     Dosage: DRINKING ?FOOD GRADE? HYDROGEN PEROXIDE
     Route: 048

REACTIONS (1)
  - Gastric ulcer [Unknown]
